FAERS Safety Report 8131797-5 (Version None)
Quarter: 2012Q1

REPORT INFORMATION
  Report Type: 
  Country: None (occurrence: None)
  Receive Date: 20120213
  Receipt Date: 20120203
  Transmission Date: 20120608
  Serious: Yes (Hospitalization)
  Sender: FDA-Public Use
  Company Number: IL-SANOFI-AVENTIS-2011SA078958

PATIENT
  Age: 62 Year
  Sex: Male

DRUGS (5)
  1. PLAVIX [Suspect]
     Route: 065
     Dates: start: 20110704
  2. APIDRA [Concomitant]
  3. LANTUS [Concomitant]
  4. PLAVIX [Suspect]
     Route: 065
     Dates: start: 20110327
  5. PLAVIX [Suspect]
     Route: 065
     Dates: start: 20101222

REACTIONS (4)
  - DYSPNOEA [None]
  - GASTROINTESTINAL HAEMORRHAGE [None]
  - MELAENA [None]
  - HAEMOGLOBIN DECREASED [None]
